FAERS Safety Report 19372775 (Version 1)
Quarter: 2021Q2

REPORT INFORMATION
  Report Type: Spontaneous
  Country: US (occurrence: US)
  Receive Date: 20210603
  Receipt Date: 20210603
  Transmission Date: 20210717
  Serious: Yes (Disabling, Other)
  Sender: FDA-Public Use
  Company Number: None

PATIENT
  Age: 12 Year
  Sex: Male
  Weight: 30.96 kg

DRUGS (7)
  1. MELATONIN [Concomitant]
     Active Substance: MELATONIN
  2. METHYLPHENIDATE ER [Concomitant]
     Active Substance: METHYLPHENIDATE
  3. GUANFACINE ER 2MG [Suspect]
     Active Substance: GUANFACINE
     Indication: TIC
     Dosage: ?          QUANTITY:1 TABLET(S);?
     Route: 048
     Dates: start: 20210321, end: 20210327
  4. GUANFACINE ER [Concomitant]
     Active Substance: GUANFACINE
  5. LORATADINE. [Concomitant]
     Active Substance: LORATADINE
  6. GUANFACINE ER 2MG [Suspect]
     Active Substance: GUANFACINE
     Indication: ATTENTION DEFICIT HYPERACTIVITY DISORDER
     Dosage: ?          QUANTITY:1 TABLET(S);?
     Route: 048
     Dates: start: 20210321, end: 20210327
  7. MULTIVITAMIN [Concomitant]
     Active Substance: VITAMINS

REACTIONS (5)
  - Depression [None]
  - Suicidal ideation [None]
  - Tic [None]
  - Suspected product contamination [None]
  - Recalled product [None]

NARRATIVE: CASE EVENT DATE: 20210327
